FAERS Safety Report 4563722-8 (Version None)
Quarter: 2005Q1

REPORT INFORMATION
  Report Type: 
  Country: None (occurrence: None)
  Receive Date: 20050112
  Receipt Date: 20050112
  Transmission Date: 20050727
  Serious: Yes (Other)
  Sender: FDA-Public Use
  Company Number: None

PATIENT
  Age: 41 Year
  Sex: Male
  Weight: 108.8633 kg

DRUGS (2)
  1. BUPROPION [Suspect]
     Indication: BIPOLAR DISORDER
     Dosage: 150 MG BID ORAL
     Route: 048
     Dates: start: 20020101
  2. BUPROPION [Suspect]
     Indication: SCHIZOPHRENIA
     Dosage: 150 MG BID ORAL
     Route: 048
     Dates: start: 20020101

REACTIONS (3)
  - PARANOIA [None]
  - PHARMACEUTICAL PRODUCT COMPLAINT [None]
  - THINKING ABNORMAL [None]
